FAERS Safety Report 9669647 (Version 1)
Quarter: 2013Q4

REPORT INFORMATION
  Report Type: Spontaneous
  Country: US (occurrence: None)
  Receive Date: 20131104
  Receipt Date: 20131104
  Transmission Date: 20140711
  Serious: Yes (Other)
  Sender: FDA-Public Use
  Company Number: None

PATIENT
  Age: 22 Year
  Sex: Male
  Weight: 74.84 kg

DRUGS (2)
  1. METHOTREXATE [Suspect]
     Indication: JUVENILE IDIOPATHIC ARTHRITIS
     Dosage: 1 PILL ONCE A WEEK (SATURDAY) MOUTH
     Route: 048
     Dates: start: 201305
  2. MOBIC [Concomitant]

REACTIONS (17)
  - Stomatitis [None]
  - Diarrhoea [None]
  - Fatigue [None]
  - Contusion [None]
  - Yellow skin [None]
  - Pallor [None]
  - Chest pain [None]
  - Headache [None]
  - Chills [None]
  - Pyrexia [None]
  - Alopecia [None]
  - Weight decreased [None]
  - Back pain [None]
  - Rash [None]
  - Asthenia [None]
  - Malaise [None]
  - Cardiac disorder [None]
